FAERS Safety Report 15998212 (Version 1)
Quarter: 2019Q1

REPORT INFORMATION
  Report Type: Spontaneous
  Country: LT (occurrence: LT)
  Receive Date: 20190223
  Receipt Date: 20190223
  Transmission Date: 20190418
  Serious: Yes (Hospitalization)
  Sender: FDA-Public Use
  Company Number: LT-ACCORD-107962

PATIENT
  Age: 71 Year
  Sex: Female
  Weight: 92 kg

DRUGS (6)
  1. PALONOSETRON/PALONOSETRON HYDROCHLORIDE [Concomitant]
     Route: 042
     Dates: start: 20180516, end: 20180628
  2. CYANOCOBALAMIN/CYANOCOBALAMIN ZINC TANNATE/CYANOCOBALAMIN-TANNIN COMPLEX [Concomitant]
     Route: 030
     Dates: start: 20180530, end: 20180530
  3. ESCITALOPRAM [Concomitant]
     Active Substance: ESCITALOPRAM OXALATE
     Route: 048
     Dates: start: 20180530, end: 20180627
  4. EXENATIDE. [Concomitant]
     Active Substance: EXENATIDE
  5. MEGESTROL [Concomitant]
     Active Substance: MEGESTROL
     Route: 048
     Dates: start: 20180614, end: 20180708
  6. GEMCITABINE/GEMCITABINE HYDROCHLORIDE [Suspect]
     Active Substance: GEMCITABINE\GEMCITABINE HYDROCHLORIDE
     Indication: PANCREATIC CARCINOMA METASTATIC
     Route: 042
     Dates: start: 20180516, end: 20180628

REACTIONS (3)
  - Pulmonary oedema [Not Recovered/Not Resolved]
  - Lymphadenopathy [Not Recovered/Not Resolved]
  - Acute respiratory failure [Not Recovered/Not Resolved]

NARRATIVE: CASE EVENT DATE: 20180708
